FAERS Safety Report 8181393-9 (Version None)
Quarter: 2012Q1

REPORT INFORMATION
  Report Type: 
  Country: None (occurrence: None)
  Receive Date: 20120302
  Receipt Date: 20120222
  Transmission Date: 20120608
  Serious: Yes (Other)
  Sender: FDA-Public Use
  Company Number: US-JNJFOC-20120211447

PATIENT
  Sex: Female
  Weight: 105.24 kg

DRUGS (6)
  1. INSULIN [Concomitant]
     Indication: DIABETES MELLITUS
  2. REFLUX MED [Concomitant]
     Dates: start: 20100101
  3. VYTORIN [Concomitant]
     Indication: ARTHRITIS
     Dates: start: 20100101
  4. SIMPONI [Suspect]
     Indication: ANKYLOSING SPONDYLITIS
     Route: 058
     Dates: start: 20110101
  5. ANTIHYPERTENSIVE (NOS) [Concomitant]
     Indication: HYPERTENSION
  6. KLONOPIN [Concomitant]
     Indication: ANXIETY
     Dates: start: 19900101

REACTIONS (8)
  - SINUSITIS [None]
  - HAEMOGLOBIN INCREASED [None]
  - HEPATIC ENZYME DECREASED [None]
  - NASAL CYST [None]
  - TONSILLAR HYPERTROPHY [None]
  - DRUG ADMINISTRATION ERROR [None]
  - DEVICE MALFUNCTION [None]
  - WRONG TECHNIQUE IN DRUG USAGE PROCESS [None]
